FAERS Safety Report 20885215 (Version 1)
Quarter: 2022Q2

REPORT INFORMATION
  Report Type: Spontaneous
  Country: IL (occurrence: None)
  Receive Date: 20220527
  Receipt Date: 20220527
  Transmission Date: 20220720
  Serious: Yes (Other)
  Sender: FDA-Public Use
  Company Number: IL-ROCHE-3099208

PATIENT

DRUGS (1)
  1. OCREVUS [Suspect]
     Active Substance: OCRELIZUMAB
     Indication: Product used for unknown indication
     Route: 065

REACTIONS (4)
  - Disease progression [Unknown]
  - Gait disturbance [Unknown]
  - Lung disorder [Unknown]
  - Diplopia [Unknown]
